FAERS Safety Report 6245624-4 (Version None)
Quarter: 2009Q2

REPORT INFORMATION
  Report Type: 
  Country: None (occurrence: None)
  Receive Date: 20090619
  Receipt Date: 20090521
  Transmission Date: 20091009
  Serious: No
  Sender: FDA-Public Use
  Company Number: ALL1-2009-01436

PATIENT
  Age: 57 Year
  Sex: Male
  Weight: 92.5 kg

DRUGS (6)
  1. VYVANSE [Suspect]
     Indication: ATTENTION DEFICIT/HYPERACTIVITY DISORDER
     Dosage: SEE IMAGE
     Route: 048
     Dates: start: 20090401, end: 20090501
  2. VYVANSE [Suspect]
     Indication: ATTENTION DEFICIT/HYPERACTIVITY DISORDER
     Dosage: SEE IMAGE
     Route: 048
     Dates: start: 20090501, end: 20090520
  3. VYVANSE [Suspect]
     Indication: ATTENTION DEFICIT/HYPERACTIVITY DISORDER
     Dosage: SEE IMAGE
     Route: 048
     Dates: start: 20090520
  4. GLEEVEC [Concomitant]
  5. ALLOPURINOL [Concomitant]
  6. LISINOPRIL [Concomitant]

REACTIONS (3)
  - DRUG INEFFECTIVE [None]
  - INTENTIONAL DRUG MISUSE [None]
  - INTENTIONAL OVERDOSE [None]
